FAERS Safety Report 4402132-0 (Version None)
Quarter: 2004Q3

REPORT INFORMATION
  Report Type: 
  Country: None (occurrence: None)
  Receive Date: 20040715
  Receipt Date: 20040623
  Transmission Date: 20050211
  Serious: Yes (Other)
  Sender: FDA-Public Use
  Company Number: 2004-DE-03303GL

PATIENT
  Age: 77 Year
  Sex: Female

DRUGS (5)
  1. TELMISARTAN (TELMISARTAN)(TA)(TELMISARTAN) [Suspect]
     Indication: HYPERTENSION
     Dosage: 80 MG PO
     Route: 048
     Dates: start: 20040426, end: 20040530
  2. MICARDIS HCT [Suspect]
     Dosage: 80 MG PO
     Route: 048
     Dates: start: 20040601, end: 20040607
  3. ACETAMINOPHEN [Concomitant]
  4. LACTULOSE [Concomitant]
  5. NITRAZEPAM [Concomitant]

REACTIONS (12)
  - ASTHENIA [None]
  - CREATININE RENAL CLEARANCE DECREASED [None]
  - DIZZINESS [None]
  - DYSPHONIA [None]
  - EOSINOPHILIA [None]
  - HOARSENESS [None]
  - LEUKOCYTOSIS [None]
  - MYALGIA [None]
  - NEUTROPENIA [None]
  - PAIN IN EXTREMITY [None]
  - PYREXIA [None]
  - VERTIGO [None]
